FAERS Safety Report 8991094 (Version 1)
Quarter: 2012Q4

REPORT INFORMATION
  Report Type: Report from Study
  Country: JP (occurrence: JP)
  Receive Date: 20121231
  Receipt Date: 20121231
  Transmission Date: 20130627
  Serious: Yes (Death, Hospitalization, Disabling)
  Sender: FDA-Public Use
  Company Number: JP-009507513-2009SP012428

PATIENT
  Age: 46 Year
  Sex: Male
  Weight: 56 kg

DRUGS (16)
  1. TEMODAL [Suspect]
     Indication: GLIOBLASTOMA MULTIFORME
     Dosage: 150 mg/m2, QD
     Route: 048
     Dates: start: 20060927, end: 20070610
  2. TEMODAL [Suspect]
     Dosage: 200 mg/m2, QD
     Route: 048
     Dates: start: 20070704, end: 20090830
  3. BAKTAR [Concomitant]
     Indication: ANTIFUNGAL PROPHYLAXIS
     Dosage: daily dose unknown
     Route: 048
     Dates: start: 20061219, end: 20090916
  4. TEGRETOL [Concomitant]
  5. MYSTAN [Concomitant]
     Route: 048
  6. PANTOSIN [Concomitant]
     Dosage: daily dose unknown
     Route: 048
  7. CEREKINON [Concomitant]
     Dosage: formulation : POR, daily dose unknown
     Route: 048
     Dates: start: 20061024
  8. EXCEGRAN [Concomitant]
     Dosage: formulation : POR
     Route: 048
  9. LAMICTAL [Concomitant]
     Dosage: daily dose unknown
     Route: 048
     Dates: start: 20090306
  10. PROHEPARUM [Concomitant]
     Dosage: daily dose unknown
     Route: 048
     Dates: start: 20060618
  11. GASTER [Concomitant]
     Dosage: UNK
     Route: 048
     Dates: start: 20070501
  12. DECADRON (DEXAMETHASONE) [Concomitant]
     Dosage: formulation : POR
     Route: 048
     Dates: start: 20070508
  13. ZOFRAN [Concomitant]
     Indication: PROPHYLAXIS
     Dosage: daily dose unknown
     Dates: start: 20060927, end: 20061001
  14. PURSENNID (SENNOSIDES) [Concomitant]
     Dosage: UNK
     Route: 048
     Dates: end: 20070319
  15. KYTRIL [Concomitant]
     Indication: PROPHYLAXIS
     Dosage: daily dose unknown
     Route: 048
     Dates: start: 20060125, end: 20070218
  16. MAGNESIUM OXIDE [Concomitant]
     Dosage: formulation : POR, daily dose unknown
     Route: 048

REACTIONS (19)
  - Decubitus ulcer [Not Recovered/Not Resolved]
  - Pneumonia [Recovered/Resolved]
  - Disease progression [Fatal]
  - Pneumonia [Recovered/Resolved with Sequelae]
  - Pneumonia [Recovered/Resolved]
  - Anaemia [Not Recovered/Not Resolved]
  - Platelet count decreased [Recovered/Resolved]
  - Hepatic function abnormal [Recovering/Resolving]
  - Lymphocyte count decreased [Recovering/Resolving]
  - Lymphocyte count decreased [Not Recovered/Not Resolved]
  - Neutrophil count decreased [Recovered/Resolved]
  - Platelet count decreased [Recovered/Resolved]
  - Hepatic function abnormal [Not Recovered/Not Resolved]
  - White blood cell count decreased [Recovered/Resolved]
  - Irritable bowel syndrome [Recovered/Resolved]
  - Nasopharyngitis [Recovered/Resolved]
  - Urinary tract infection [Recovered/Resolved]
  - Hyperglycaemia [Not Recovered/Not Resolved]
  - Pyrexia [Recovered/Resolved]
